FAERS Safety Report 18554848 (Version 2)
Quarter: 2021Q1

REPORT INFORMATION
  Report Type: Spontaneous
  Country: TR (occurrence: TR)
  Receive Date: 20201127
  Receipt Date: 20210104
  Transmission Date: 20210419
  Serious: Yes (Life-Threatening, Other)
  Sender: FDA-Public Use
  Company Number: TR-CELGENEUS-TUR-20201105172

PATIENT
  Age: 71 Year
  Sex: Male
  Weight: 82 kg

DRUGS (24)
  1. SERPLULIMAB. [Suspect]
     Active Substance: SERPLULIMAB
     Dosage: CYCLE 2
     Route: 041
     Dates: start: 20200918, end: 20200918
  2. D?COLEFOR [Concomitant]
     Route: 065
  3. RANITIDIN [Concomitant]
     Active Substance: RANITIDINE HYDROCHLORIDE
     Indication: PROPHYLAXIS
     Route: 041
     Dates: start: 20200824
  4. CARBOPLATIN. [Suspect]
     Active Substance: CARBOPLATIN
     Indication: NON-SMALL CELL LUNG CANCER
     Dosage: CYCLE 1
     Route: 041
     Dates: start: 20200825, end: 20200825
  5. HYZAAR FORTE [Concomitant]
     Indication: HYPERTENSION
     Route: 048
     Dates: start: 2020
  6. LIPANTHYL [Concomitant]
     Active Substance: FENOFIBRATE
     Indication: HYPERLIPIDAEMIA
     Route: 048
     Dates: start: 2020
  7. D?COLEFOR [Concomitant]
     Indication: VITAMIN D DEFICIENCY
     Route: 048
     Dates: start: 20200401
  8. ABRAXANE [Suspect]
     Active Substance: PACLITAXEL
     Dosage: CYCLE 2
     Route: 041
     Dates: start: 20200918, end: 20200918
  9. ABRAXANE [Suspect]
     Active Substance: PACLITAXEL
     Dosage: CYCLE 3
     Route: 041
     Dates: start: 20201016, end: 20201016
  10. ABRAXANE [Suspect]
     Active Substance: PACLITAXEL
     Dosage: 194 MILLIGRAM
     Route: 041
     Dates: start: 20201110, end: 20201110
  11. ABRAXANE [Suspect]
     Active Substance: PACLITAXEL
     Indication: NON-SMALL CELL LUNG CANCER
     Dosage: CYCLE 1
     Route: 041
     Dates: start: 20200825, end: 20200825
  12. SERPLULIMAB. [Suspect]
     Active Substance: SERPLULIMAB
     Dosage: 380 MILLIGRAM??CYCLE 3
     Route: 041
     Dates: start: 20201016, end: 20201016
  13. CARBOPLATIN. [Suspect]
     Active Substance: CARBOPLATIN
     Dosage: CYCLE 2
     Route: 041
     Dates: start: 20200918, end: 20200918
  14. CARBOPLATIN. [Suspect]
     Active Substance: CARBOPLATIN
     Dosage: 490 MILLIGRAM??CYCLE 3
     Route: 041
     Dates: start: 20201016, end: 20201016
  15. AVIL [Concomitant]
     Active Substance: PHENIRAMINE
     Indication: PROPHYLAXIS
     Route: 041
     Dates: start: 20200825
  16. SERPLULIMAB. [Suspect]
     Active Substance: SERPLULIMAB
     Indication: NON-SMALL CELL LUNG CANCER
     Dosage: CYCLE 1
     Route: 041
     Dates: start: 20200825, end: 20200825
  17. UROREC [Concomitant]
     Active Substance: SILODOSIN
     Indication: BENIGN PROSTATIC HYPERPLASIA
     Route: 048
     Dates: start: 2020
  18. SANELOC [Concomitant]
     Active Substance: METOPROLOL
     Indication: ARTERIOSCLEROSIS
     Route: 048
     Dates: start: 2020
  19. KYTRIL [Concomitant]
     Active Substance: GRANISETRON HYDROCHLORIDE
     Indication: PROPHYLAXIS
     Route: 065
     Dates: start: 20200814
  20. DECORT [Concomitant]
     Indication: PROPHYLAXIS
     Route: 041
     Dates: start: 20200824
  21. ABRAXANE [Suspect]
     Active Substance: PACLITAXEL
     Dosage: REDUCED DOSE
     Route: 041
     Dates: start: 2020
  22. CARBOPLATIN. [Suspect]
     Active Substance: CARBOPLATIN
     Dosage: REDUCED DOSE
     Route: 041
     Dates: start: 2020
  23. CORASPIN [Concomitant]
     Active Substance: ASPIRIN
     Indication: ARTERIOSCLEROSIS
     Route: 048
     Dates: start: 2020
  24. MAGVITAL [Concomitant]
     Indication: HYPOMAGNESAEMIA
     Route: 048
     Dates: start: 20200907

REACTIONS (1)
  - Neutropenia [Recovered/Resolved]

NARRATIVE: CASE EVENT DATE: 20201116
